FAERS Safety Report 5751282-5 (Version None)
Quarter: 2008Q2

REPORT INFORMATION
  Report Type: 
  Country: None (occurrence: None)
  Receive Date: 20080528
  Receipt Date: 20080516
  Transmission Date: 20081010
  Serious: Yes (Other)
  Sender: FDA-Public Use
  Company Number: US-PFIZER INC-2007107313

PATIENT
  Sex: Female
  Weight: 68.9 kg

DRUGS (5)
  1. LYRICA [Suspect]
     Indication: FIBROMYALGIA
     Route: 048
  2. SYNTHROID [Concomitant]
  3. SPIRONOLACTONE [Concomitant]
  4. ZITHROMAX [Concomitant]
  5. TUSSI ORGANIDIN DM [Concomitant]

REACTIONS (11)
  - AGORAPHOBIA [None]
  - BODY TEMPERATURE FLUCTUATION [None]
  - DISCOMFORT [None]
  - DIZZINESS [None]
  - DYSPHONIA [None]
  - EMOTIONAL DISTRESS [None]
  - HYPERSOMNIA [None]
  - IMPAIRED DRIVING ABILITY [None]
  - NAUSEA [None]
  - TREMOR [None]
  - WITHDRAWAL SYNDROME [None]
